FAERS Safety Report 8116449-X (Version None)
Quarter: 2012Q1

REPORT INFORMATION
  Report Type: 
  Country: None (occurrence: None)
  Receive Date: 20120120
  Receipt Date: 20120113
  Transmission Date: 20120608
  Serious: Yes (Hospitalization)
  Sender: FDA-Public Use
  Company Number: 2011029992

PATIENT
  Age: 50 Year
  Sex: Female
  Weight: 83.4619 kg

DRUGS (25)
  1. HIZENTRA [Suspect]
  2. ALBUTEROL [Concomitant]
  3. PREDNISONE TAB [Concomitant]
  4. ZOFRAN [Concomitant]
  5. HIZENTRA [Suspect]
  6. HIZENTRA [Suspect]
  7. HIZENTRA [Suspect]
  8. PREMARIN [Concomitant]
  9. OMEPRAZOLE [Concomitant]
  10. DOXYCYCLINE HYCLATE (DOXYCYCLINE HYCLAT) [Concomitant]
  11. FEXOFENADINE PSE (FEXOFENADINE) [Concomitant]
  12. PROAIR HFA (PROCATEROL HYDROCHLORIDE) [Concomitant]
  13. HIZENTRA [Suspect]
  14. HIZENTRA [Suspect]
  15. HIZENTRA [Suspect]
  16. CLONAZEPAM (CLONZEPAM) [Concomitant]
  17. IBUPROFEN [Concomitant]
  18. HIZENTRA [Suspect]
     Indication: HYPOGAMMAGLOBULINAEMIA
     Dosage: SEE IMAGE
     Route: 058
     Dates: start: 20110923, end: 20110923
  19. HIZENTRA [Suspect]
     Indication: HYPOGAMMAGLOBULINAEMIA
     Dosage: SEE IMAGE
     Route: 058
     Dates: start: 20110916, end: 20110916
  20. HIZENTRA [Suspect]
     Indication: HYPOGAMMAGLOBULINAEMIA
     Dosage: SEE IMAGE
     Route: 058
     Dates: start: 20111007, end: 20111007
  21. HIZENTRA [Suspect]
     Indication: HYPOGAMMAGLOBULINAEMIA
     Dosage: SEE IMAGE
     Route: 058
     Dates: start: 20110916, end: 20110916
  22. HIZENTRA [Suspect]
     Indication: HYPOGAMMAGLOBULINAEMIA
     Dosage: SEE IMAGE
     Route: 058
     Dates: start: 20110930, end: 20110930
  23. HIZENTRA [Suspect]
  24. HIZENTRA [Suspect]
  25. AMOXICILLIN [Concomitant]

REACTIONS (13)
  - PAIN [None]
  - DIARRHOEA [None]
  - INFUSION SITE SWELLING [None]
  - HEADACHE [None]
  - SINUSITIS [None]
  - PYREXIA [None]
  - INFUSION SITE PAIN [None]
  - INFUSION SITE ERYTHEMA [None]
  - MENINGITIS VIRAL [None]
  - VENOUS INJURY [None]
  - VOMITING [None]
  - NAUSEA [None]
  - INFUSION SITE WARMTH [None]
